FAERS Safety Report 13273040 (Version 1)
Quarter: 2017Q1

REPORT INFORMATION
  Report Type: Spontaneous
  Country: US (occurrence: US)
  Receive Date: 20170227
  Receipt Date: 20170227
  Transmission Date: 20170428
  Serious: No
  Sender: FDA-Public Use
  Company Number: None

PATIENT
  Age: 35 Year
  Sex: Male

DRUGS (1)
  1. HUMALOG [Suspect]
     Active Substance: INSULIN LISPRO
     Indication: DIABETES MELLITUS
     Dosage: DOSE - USE UP TO 139 UNITS UNDER THE SKIN DAILY AS DIRECTED VIA INSULIN PUMP
     Route: 058
     Dates: end: 201612

REACTIONS (3)
  - Product quality issue [None]
  - Diabetes mellitus inadequate control [None]
  - Blood glucose increased [None]
